FAERS Safety Report 8383578-5 (Version None)
Quarter: 2012Q1

REPORT INFORMATION
  Report Type: 
  Country: None (occurrence: None)
  Receive Date: 20120323
  Receipt Date: 20111215
  Transmission Date: 20120608
  Serious: Yes (Other)
  Sender: FDA-Public Use
  Company Number: 163-21880-11032596

PATIENT
  Age: 82 Year
  Sex: Male
  Weight: 78.9259 kg

DRUGS (16)
  1. REVLIMID [Suspect]
     Indication: MYELODYSPLASTIC SYNDROME
     Dosage: 10 MG, DAILY FOR 28 DAYS, PO 5 MG, DAILY, PO 5 MG, QOD, PO 5 MG, 1 IN 1 D, PO
     Route: 048
     Dates: start: 20110309, end: 20110318
  2. REVLIMID [Suspect]
     Indication: MYELODYSPLASTIC SYNDROME
     Dosage: 10 MG, DAILY FOR 28 DAYS, PO 5 MG, DAILY, PO 5 MG, QOD, PO 5 MG, 1 IN 1 D, PO
     Route: 048
     Dates: start: 20110325
  3. REVLIMID [Suspect]
     Indication: MYELODYSPLASTIC SYNDROME
     Dosage: 10 MG, DAILY FOR 28 DAYS, PO 5 MG, DAILY, PO 5 MG, QOD, PO 5 MG, 1 IN 1 D, PO
     Route: 048
     Dates: start: 20111013
  4. REVLIMID [Suspect]
     Indication: MYELODYSPLASTIC SYNDROME
     Dosage: 10 MG, DAILY FOR 28 DAYS, PO 5 MG, DAILY, PO 5 MG, QOD, PO 5 MG, 1 IN 1 D, PO
     Route: 048
     Dates: start: 20110822, end: 20111001
  5. LISINOPRIL [Concomitant]
  6. ACETAMINOPHEN [Concomitant]
  7. FOLIC ACID [Concomitant]
  8. ALLOPURINOL [Concomitant]
  9. METFORMIN HCL [Concomitant]
  10. IRON (IRON) [Concomitant]
  11. FLOMAX [Concomitant]
  12. PRCRIT (ERYTHROPOIETIN) [Concomitant]
  13. VITAMIN B12 (CYANOCOBLAMAIN) [Concomitant]
  14. DETROL LA [Concomitant]
  15. PRAVASTATIN [Concomitant]
  16. PRILOSEC [Concomitant]

REACTIONS (2)
  - PLATELET COUNT DECREASED [None]
  - WHITE BLOOD CELL COUNT DECREASED [None]
